FAERS Safety Report 12917152 (Version 2)
Quarter: 2016Q4

REPORT INFORMATION
  Report Type: Report from Study
  Country: IN (occurrence: IN)
  Receive Date: 20161107
  Receipt Date: 20161123
  Transmission Date: 20170207
  Serious: Yes (Hospitalization)
  Sender: FDA-Public Use
  Company Number: IN-PFIZER INC-2016517164

PATIENT
  Age: 28 Year
  Sex: Female
  Weight: 44 kg

DRUGS (10)
  1. ACITROM [Concomitant]
     Active Substance: ACENOCOUMAROL
     Indication: ANTICOAGULANT THERAPY
     Dosage: 1 MG, TOTAL DAILY DOSE (TDD)
     Dates: start: 20160408
  2. AMIODARONE [Concomitant]
     Active Substance: AMIODARONE
     Indication: VENTRICULAR TACHYCARDIA
     Dosage: 100 MG, TDD
     Dates: start: 20160406
  3. ALDACTONE [Concomitant]
     Active Substance: SPIRONOLACTONE
     Indication: DIURETIC THERAPY
     Dosage: 25 MG, BID
     Dates: start: 20160406
  4. SHELCAL [Concomitant]
     Indication: BLOOD CALCIUM
     Dosage: 500 MG, TDD
     Dates: start: 20160826
  5. UT-15C [Suspect]
     Active Substance: TREPROSTINIL DIOLAMINE
     Indication: PULMONARY ARTERIAL HYPERTENSION
     Dosage: UNK
     Route: 048
     Dates: start: 20101126
  6. UT-15C [Suspect]
     Active Substance: TREPROSTINIL DIOLAMINE
     Dosage: 2.5 MG, 2X/DAY
     Dates: start: 20160412, end: 20160920
  7. TORSEMIDE. [Suspect]
     Active Substance: TORSEMIDE
     Indication: DIURETIC THERAPY
     Dosage: 30 MG, TOTAL DAILY DOSE
     Route: 042
     Dates: start: 20160406, end: 20160921
  8. THYRONORM [Concomitant]
     Active Substance: LEVOTHYROXINE
     Indication: HYPOTHYROIDISM
     Dosage: 12.5 UG, 2X/DAY
     Dates: start: 20160912
  9. SILDENAFIL CITRATE. [Suspect]
     Active Substance: SILDENAFIL CITRATE
     Indication: PULMONARY HYPERTENSION
     Dosage: 12.5 MG, BID
     Dates: start: 20160423, end: 20160921
  10. TORSEMIDE. [Suspect]
     Active Substance: TORSEMIDE
     Dosage: 10 MG, TDD
     Dates: start: 20161008

REACTIONS (2)
  - Abdominal pain [Recovered/Resolved]
  - Dyspnoea [Recovered/Resolved]

NARRATIVE: CASE EVENT DATE: 20160916
